FAERS Safety Report 25182956 (Version 1)
Quarter: 2025Q2

REPORT INFORMATION
  Report Type: Spontaneous
  Country: AU (occurrence: AU)
  Receive Date: 20250410
  Receipt Date: 20250410
  Transmission Date: 20250716
  Serious: Yes (Other)
  Sender: ACCORD
  Company Number: None

PATIENT
  Sex: Female

DRUGS (2)
  1. METHOTREXATE [Suspect]
     Active Substance: METHOTREXATE
     Indication: Product used for unknown indication
  2. SECUKINUMAB [Suspect]
     Active Substance: SECUKINUMAB
     Indication: Product used for unknown indication

REACTIONS (8)
  - COVID-19 [Unknown]
  - Pneumonia [Unknown]
  - Psoriatic arthropathy [Unknown]
  - Infection [Unknown]
  - Skin candida [Unknown]
  - Staphylococcal skin infection [Unknown]
  - Vulvovaginal candidiasis [Unknown]
  - Prescription drug used without a prescription [Unknown]
